FAERS Safety Report 4628624-7 (Version None)
Quarter: 2005Q2

REPORT INFORMATION
  Report Type: 
  Country: None (occurrence: None)
  Receive Date: 20050404
  Receipt Date: 20050317
  Transmission Date: 20051028
  Serious: Yes (Life-Threatening)
  Sender: FDA-Public Use
  Company Number: 20050300062

PATIENT
  Age: 36 Year
  Sex: Male
  Weight: 80 kg

DRUGS (6)
  1. SUPRANE [Suspect]
     Indication: MAINTENANCE OF ANAESTHESIA
     Dates: start: 20050220, end: 20050220
  2. CELOCURINE         (SUXAMETHONIUM) [Suspect]
     Indication: MAINTENANCE OF ANAESTHESIA
     Dosage: 100 MG ONCE IV
     Route: 042
     Dates: start: 20050220, end: 20050220
  3. PENTOTHAL        (THIOPENTAL) [Suspect]
     Indication: INDUCTION OF ANAESTHESIA
     Dosage: 500 MG ONCE IV
     Route: 042
     Dates: start: 20050220, end: 20050220
  4. SUFENTA [Suspect]
     Indication: INDUCTION OF ANAESTHESIA
     Dosage: 60 MCG ONCE IV
     Route: 042
     Dates: start: 20050220, end: 20050220
  5. NAROPEINE (ROPIVACAINE) [Suspect]
     Indication: ANALGESIC EFFECT
     Dosage: 15 ML ONCE
     Dates: start: 20050220, end: 20050220
  6. ZOPHREN (ONDANSETRON) [Suspect]
     Indication: NAUSEA
     Dates: start: 20050221, end: 20050221

REACTIONS (4)
  - BRADYCARDIA [None]
  - CARDIAC ARREST [None]
  - TORSADE DE POINTES [None]
  - VENTRICULAR FIBRILLATION [None]
